FAERS Safety Report 9203413 (Version 1)
Quarter: 2013Q1

REPORT INFORMATION
  Report Type: Spontaneous
  Country: IN (occurrence: None)
  Receive Date: 20130328
  Receipt Date: 20130328
  Transmission Date: 20140127
  Serious: Yes (Hospitalization)
  Sender: FDA-Public Use
  Company Number: 2013-080

PATIENT
  Age: 66 Year
  Sex: Male

DRUGS (1)
  1. CLOZAPINE [Suspect]
     Indication: SCHIZOPHRENIA
     Route: 048

REACTIONS (7)
  - Catatonia [None]
  - Drug withdrawal syndrome [None]
  - Immobile [None]
  - Mutism [None]
  - Negativism [None]
  - Stupor [None]
  - Parkinsonism [None]
